FAERS Safety Report 16658557 (Version 1)
Quarter: 2019Q3

REPORT INFORMATION
  Report Type: Report from Study
  Country: FR (occurrence: FR)
  Receive Date: 20190801
  Receipt Date: 20190801
  Transmission Date: 20191004
  Serious: Yes (Hospitalization, Other)
  Sender: FDA-Public Use
  Company Number: FR-JAZZ-2019-FR-009608

PATIENT

DRUGS (3)
  1. CYCLOSPORINE. [Concomitant]
     Active Substance: CYCLOSPORINE
     Indication: PROPHYLAXIS
     Dosage: 3 MG/KG, QD
     Route: 042
     Dates: start: 20161028, end: 20161204
  2. TACROLIMUS. [Concomitant]
     Active Substance: TACROLIMUS
     Indication: PROPHYLAXIS
     Dosage: 6 MG, QD
     Route: 048
     Dates: start: 20161209
  3. DEFITELIO [Suspect]
     Active Substance: DEFIBROTIDE SODIUM
     Indication: VENOOCCLUSIVE DISEASE
     Dosage: 25 MG/KG, QD
     Dates: start: 20161124, end: 20161205

REACTIONS (5)
  - Epstein-Barr virus associated lymphoma [Recovered/Resolved]
  - Venoocclusive disease [Recovered/Resolved]
  - Incorrect product administration duration [Unknown]
  - Drug ineffective [Unknown]
  - Liver transplant [Recovered/Resolved]

NARRATIVE: CASE EVENT DATE: 20161130
